FAERS Safety Report 6713858-8 (Version None)
Quarter: 2010Q2

REPORT INFORMATION
  Report Type: 
  Country: None (occurrence: None)
  Receive Date: 20100506
  Receipt Date: 20100428
  Transmission Date: 20101027
  Serious: Yes (Life-Threatening)
  Sender: FDA-Public Use
  Company Number: JP-MERCK-1004USA04798

PATIENT
  Age: 86 Year
  Sex: Female

DRUGS (5)
  1. JANUVIA [Suspect]
     Indication: DIABETES MELLITUS
     Route: 048
     Dates: start: 20100326, end: 20100427
  2. DAONIL [Suspect]
     Indication: DIABETES MELLITUS
     Route: 048
     Dates: end: 20100427
  3. NORVASC [Concomitant]
     Indication: HYPERTENSION
     Route: 048
  4. MUCOSTA [Concomitant]
     Indication: GASTRITIS
     Route: 048
  5. VESICARE [Concomitant]
     Indication: HYPERTONIC BLADDER
     Route: 048

REACTIONS (1)
  - HYPOGLYCAEMIA [None]
